FAERS Safety Report 12826159 (Version 2)
Quarter: 2018Q3

REPORT INFORMATION
  Report Type: Spontaneous
  Country: US (occurrence: US)
  Receive Date: 20161006
  Receipt Date: 20180813
  Transmission Date: 20181010
  Serious: No
  Sender: FDA-Public Use
  Company Number: US-JAZZ-2016-US-012526

PATIENT
  Sex: Female

DRUGS (24)
  1. XYREM [Suspect]
     Active Substance: SODIUM OXYBATE
     Dosage: 4.5 G, BID
     Route: 048
     Dates: start: 201102
  2. PROGESTERONE. [Concomitant]
     Active Substance: PROGESTERONE
  3. XYREM [Suspect]
     Active Substance: SODIUM OXYBATE
     Indication: NARCOLEPSY
     Dosage: 2.25 G, BID
     Route: 048
     Dates: start: 200411, end: 200412
  4. RED YEAST RICE [Concomitant]
     Active Substance: DIETARY SUPPLEMENT
  5. XYREM [Suspect]
     Active Substance: SODIUM OXYBATE
     Dosage: DOSE ADJUSTMENTS
     Route: 048
     Dates: start: 201007, end: 201102
  6. CEFALEXIN [Concomitant]
     Active Substance: CEPHALEXIN
  7. XYREM [Suspect]
     Active Substance: SODIUM OXYBATE
     Indication: CATAPLEXY
     Dosage: DOSE ADJUSTMENTS
     Route: 048
     Dates: start: 200412, end: 200502
  8. XYREM [Suspect]
     Active Substance: SODIUM OXYBATE
     Dosage: 4.5 G, BID
     Route: 048
     Dates: start: 200502, end: 2005
  9. XYREM [Suspect]
     Active Substance: SODIUM OXYBATE
     Dosage: 1.5 G, BID
     Route: 048
     Dates: start: 201005, end: 201007
  10. ADRENAL [Concomitant]
     Active Substance: EPINEPHRINE
  11. FISH OIL CONCENTRATE [Concomitant]
     Active Substance: FISH OIL
  12. NIACIN. [Concomitant]
     Active Substance: NIACIN
  13. CRANBERRY + VITAMIN C [Concomitant]
  14. ESTROGENS CONJUGATED [Concomitant]
     Active Substance: ESTROGENS, CONJUGATED
  15. MAGNESIUM OXIDE. [Concomitant]
     Active Substance: MAGNESIUM OXIDE
  16. PREGNENOLONE [Concomitant]
     Active Substance: PREGNENOLONE
  17. TOPIRAMATE. [Concomitant]
     Active Substance: TOPIRAMATE
  18. PREMARIN [Concomitant]
     Active Substance: ESTROGENS, CONJUGATED
  19. TESTOSTERONE. [Concomitant]
     Active Substance: TESTOSTERONE
  20. DANAZOL. [Concomitant]
     Active Substance: DANAZOL
  21. SAM?E [Concomitant]
     Active Substance: ADEMETIONINE
  22. DHEA [Concomitant]
     Active Substance: PRASTERONE
  23. DEXILANT [Concomitant]
     Active Substance: DEXLANSOPRAZOLE
  24. TRYPTOPHAN, L? [Concomitant]
     Active Substance: TRYPTOPHAN

REACTIONS (2)
  - Cough [Not Recovered/Not Resolved]
  - Hypersensitivity [Not Recovered/Not Resolved]
